FAERS Safety Report 23935125 (Version 1)
Quarter: 2024Q2

REPORT INFORMATION
  Report Type: Spontaneous
  Country: US (occurrence: US)
  Receive Date: 20240604
  Receipt Date: 20240604
  Transmission Date: 20240716
  Serious: No
  Sender: FDA-Public Use
  Company Number: US-ELI_LILLY_AND_COMPANY-US202406000230

PATIENT
  Age: 15 Year
  Sex: Female

DRUGS (1)
  1. TALTZ [Suspect]
     Active Substance: IXEKIZUMAB
     Indication: Psoriasis
     Dosage: 80 MG, OTHER(EVERY 4 WEEKS)
     Route: 058

REACTIONS (4)
  - Acne [Unknown]
  - Alopecia [Unknown]
  - Drug ineffective [Unknown]
  - Psoriasis [Unknown]
